FAERS Safety Report 15523444 (Version 2)
Quarter: 2018Q4

REPORT INFORMATION
  Report Type: Spontaneous
  Country: DE (occurrence: DE)
  Receive Date: 20181018
  Receipt Date: 20181105
  Transmission Date: 20190205
  Serious: Yes (Other)
  Sender: FDA-Public Use
  Company Number: DE-BAUSCH-BL-2018-027552

PATIENT
  Age: 54 Year
  Sex: Male

DRUGS (5)
  1. BUDESONIDE. [Suspect]
     Active Substance: BUDESONIDE
     Indication: POUCHITIS
     Route: 065
     Dates: start: 2015
  2. METRONIDAZOLE. [Suspect]
     Active Substance: METRONIDAZOLE
     Indication: POUCHITIS
     Route: 065
     Dates: start: 2015
  3. HYDROCORTISONE ACETATE. [Suspect]
     Active Substance: HYDROCORTISONE ACETATE
     Indication: POUCHITIS
     Route: 065
     Dates: start: 2015
  4. VSL 3 [Suspect]
     Active Substance: PROBIOTICS NOS
     Indication: POUCHITIS
     Route: 065
     Dates: start: 2015
  5. MESALAMINE. [Suspect]
     Active Substance: MESALAMINE
     Indication: POUCHITIS
     Route: 065
     Dates: start: 2015

REACTIONS (1)
  - Multiple-drug resistance [Unknown]
